FAERS Safety Report 6996972-1 (Version None)
Quarter: 2010Q3

REPORT INFORMATION
  Report Type: 
  Country: None (occurrence: None)
  Receive Date: 20100918
  Receipt Date: 20090831
  Transmission Date: 20110219
  Serious: No
  Sender: FDA-Public Use
  Company Number: US-WYE-H10787209

PATIENT
  Sex: Male
  Weight: 97.61 kg

DRUGS (8)
  1. PRISTIQ [Suspect]
     Indication: DEPRESSION
     Route: 048
     Dates: start: 20090826
  2. LISINOPRIL [Concomitant]
  3. LIALDA [Concomitant]
  4. METOPROLOL [Concomitant]
  5. METAMUCIL-2 [Concomitant]
  6. IMODIUM [Concomitant]
  7. LIPITOR [Concomitant]
  8. FISH OIL, HYDROGENATED [Concomitant]

REACTIONS (2)
  - DRY MOUTH [None]
  - FATIGUE [None]
